FAERS Safety Report 18685979 (Version 2)
Quarter: 2021Q1

REPORT INFORMATION
  Report Type: Spontaneous
  Country: US (occurrence: US)
  Receive Date: 20201230
  Receipt Date: 20210113
  Transmission Date: 20210419
  Serious: Yes (Death, Other)
  Sender: FDA-Public Use
  Company Number: US-009507513-2012USA011241

PATIENT
  Sex: Male

DRUGS (2)
  1. KEYTRUDA [Suspect]
     Active Substance: PEMBROLIZUMAB
  2. CISPLATIN. [Suspect]
     Active Substance: CISPLATIN

REACTIONS (7)
  - Weight abnormal [Unknown]
  - Illness [Unknown]
  - Adverse reaction [Unknown]
  - Respiratory arrest [Fatal]
  - Malignant neoplasm progression [Unknown]
  - Drug ineffective [Unknown]
  - Asthenia [Unknown]
